FAERS Safety Report 7642154-X (Version None)
Quarter: 2011Q3

REPORT INFORMATION
  Report Type: 
  Country: None (occurrence: None)
  Receive Date: 20110728
  Receipt Date: 20110719
  Transmission Date: 20111222
  Serious: Yes (Hospitalization)
  Sender: FDA-Public Use
  Company Number: JP-B.I. PHARMACEUTICALS,INC./RIDGEFIELD-2011-RU-00028BP

PATIENT
  Sex: Male
  Weight: 68.5 kg

DRUGS (5)
  1. LASIX [Concomitant]
     Indication: PULMONARY CONGESTION
     Dates: start: 20110430, end: 20110510
  2. BI 1356 [Suspect]
     Indication: TYPE 2 DIABETES MELLITUS
     Dosage: 5 MG
     Route: 048
     Dates: start: 20110331
  3. LIASOPHIN [Concomitant]
     Indication: PNEUMONIA
     Dosage: 2 MG
     Route: 042
     Dates: start: 20110430, end: 20110430
  4. LIASOPHIN [Concomitant]
     Dosage: 4 MG
     Route: 042
     Dates: start: 20110501, end: 20110506
  5. BICARBON [Concomitant]
     Indication: PNEUMONIA
     Dates: start: 20110430, end: 20110510

REACTIONS (1)
  - PNEUMONIA [None]
